FAERS Safety Report 25436619 (Version 1)
Quarter: 2025Q2

REPORT INFORMATION
  Report Type: Spontaneous
  Country: US (occurrence: US)
  Receive Date: 20250614
  Receipt Date: 20250614
  Transmission Date: 20250716
  Serious: Yes (Other)
  Sender: TRAVERE THERAPEUTICS
  Company Number: US-TRAVERE-2025TVT00924

PATIENT
  Age: 52 Year
  Sex: Male

DRUGS (4)
  1. FILSPARI [Suspect]
     Active Substance: SPARSENTAN
     Indication: Chronic kidney disease
     Route: 048
     Dates: start: 20240118
  2. FUROSEMIDE [Concomitant]
     Active Substance: FUROSEMIDE
  3. VELTASSA [Concomitant]
     Active Substance: PATIROMER
  4. SODIUM BICARBONATE [Concomitant]
     Active Substance: SODIUM BICARBONATE

REACTIONS (3)
  - Urine protein/creatinine ratio increased [Unknown]
  - Protein urine present [Unknown]
  - Off label use [Unknown]

NARRATIVE: CASE EVENT DATE: 20241101
